FAERS Safety Report 10208536 (Version 2)
Quarter: 2014Q3

REPORT INFORMATION
  Report Type: Spontaneous
  Country: US (occurrence: US)
  Receive Date: 20140530
  Receipt Date: 20140725
  Transmission Date: 20150326
  Serious: Yes (Death, Hospitalization)
  Sender: FDA-Public Use
  Company Number: US-ASTRAZENECA-2014SE36751

PATIENT
  Age: 82 Year
  Sex: Male
  Weight: 74.8 kg

DRUGS (5)
  1. COUMACIN [Concomitant]
     Indication: COAGULOPATHY
     Dosage: UNKNOWN
  2. SEVERAL PUFFERS [Concomitant]
     Indication: CHRONIC OBSTRUCTIVE PULMONARY DISEASE
     Dosage: UNKNOWN
  3. NEXIUM [Suspect]
     Active Substance: ESOMEPRAZOLE MAGNESIUM
     Indication: GASTROOESOPHAGEAL REFLUX DISEASE
     Route: 048
     Dates: end: 20061121
  4. SYMBICORT [Suspect]
     Active Substance: BUDESONIDE\FORMOTEROL FUMARATE DIHYDRATE
     Indication: CHRONIC OBSTRUCTIVE PULMONARY DISEASE
     Dosage: UNKNOWN
     Route: 055
     Dates: end: 20061121
  5. OXYGEN. [Concomitant]
     Active Substance: OXYGEN
     Dosage: UNKNOWN

REACTIONS (4)
  - Chronic obstructive pulmonary disease [Fatal]
  - Gastric cancer [Unknown]
  - Barrett^s oesophagus [Unknown]
  - Snoring [Unknown]
